FAERS Safety Report 12147103 (Version 1)
Quarter: 2016Q1

REPORT INFORMATION
  Report Type: Spontaneous
  Country: US (occurrence: US)
  Receive Date: 20160304
  Receipt Date: 20160304
  Transmission Date: 20160526
  Serious: Yes (Other)
  Sender: FDA-Public Use
  Company Number: US-RB-059792-13

PATIENT
  Age: 0 Year
  Sex: Male
  Weight: 2.75 kg

DRUGS (5)
  1. SUBUTEX [Suspect]
     Active Substance: BUPRENORPHINE HYDROCHLORIDE
     Indication: DRUG DEPENDENCE
     Dosage: 8 MG, TID
     Route: 064
     Dates: start: 20121228, end: 20130713
  2. SUBOXONE [Suspect]
     Active Substance: BUPRENORPHINE HYDROCHLORIDE\NALOXONE HYDROCHLORIDE
     Indication: DRUG DEPENDENCE
     Dosage: 8 MG, TID
     Route: 064
     Dates: start: 2012, end: 20121227
  3. SUBUTEX [Suspect]
     Active Substance: BUPRENORPHINE HYDROCHLORIDE
     Dosage: 8 MG, TID
     Route: 063
     Dates: start: 20130713
  4. NICOTINE. [Suspect]
     Active Substance: NICOTINE
     Dosage: MOTHER WAS SMOKING 10 CIGARETTES A DAY.
     Route: 063
     Dates: start: 20130713
  5. NICOTINE. [Suspect]
     Active Substance: NICOTINE
     Indication: PRODUCT USED FOR UNKNOWN INDICATION
     Dosage: MOTHER WAS SMOKING 10 CIGARETTES A DAY.
     Route: 064
     Dates: start: 20120930, end: 20130713

REACTIONS (3)
  - Drug withdrawal syndrome neonatal [Recovered/Resolved]
  - Foetal exposure during pregnancy [Recovered/Resolved]
  - Exposure during breast feeding [Not Recovered/Not Resolved]

NARRATIVE: CASE EVENT DATE: 2012
